FAERS Safety Report 5042020-2 (Version None)
Quarter: 2006Q2

REPORT INFORMATION
  Report Type: 
  Country: None (occurrence: None)
  Receive Date: 20060627
  Receipt Date: 20060606
  Transmission Date: 20061013
  Serious: Yes (Death, Hospitalization)
  Sender: FDA-Public Use
  Company Number: 2006001173

PATIENT
  Age: 71 Year
  Sex: Female
  Weight: 58.9 kg

DRUGS (4)
  1. ERLOTINIB (TABLET) [Suspect]
     Indication: NON-SMALL CELL LUNG CANCER
     Dosage: 150 MG, CYCLE 21 DAYS (OD), ORAL
     Route: 048
     Dates: start: 20050707, end: 20060515
  2. COLACE (DOCUSATE SODIUM) [Concomitant]
  3. FERROUS SULFATE TAB [Concomitant]
  4. VICODIN [Concomitant]

REACTIONS (13)
  - ABDOMINAL PAIN [None]
  - COLITIS ISCHAEMIC [None]
  - CONSTIPATION [None]
  - DEHYDRATION [None]
  - GASTRITIS [None]
  - HAEMOGLOBIN DECREASED [None]
  - INTESTINAL OBSTRUCTION [None]
  - LOWER GASTROINTESTINAL HAEMORRHAGE [None]
  - NAUSEA [None]
  - OBSTRUCTION GASTRIC [None]
  - UPPER GASTROINTESTINAL HAEMORRHAGE [None]
  - URINARY TRACT INFECTION [None]
  - VOMITING [None]
